FAERS Safety Report 20473085 (Version 1)
Quarter: 2022Q1

REPORT INFORMATION
  Report Type: Spontaneous
  Country: FR (occurrence: FR)
  Receive Date: 20220215
  Receipt Date: 20220215
  Transmission Date: 20220423
  Serious: Yes (Life-Threatening, Other)
  Sender: FDA-Public Use
  Company Number: FR-AFSSAPS-PO20220238

PATIENT
  Age: 79 Year
  Sex: Male
  Weight: 48 kg

DRUGS (4)
  1. OXYCODONE [Suspect]
     Active Substance: OXYCODONE
     Indication: Toxicity to various agents
     Dosage: UNK (AMOUNT INGESTED UNKNOWN)
     Route: 048
     Dates: start: 20211214, end: 20211214
  2. SKENAN [Suspect]
     Active Substance: MORPHINE SULFATE
     Indication: Toxicity to various agents
     Dosage: UNK (AMOUNT INGESTED UNKNOWN)
     Route: 048
     Dates: start: 20211214, end: 20211214
  3. OXAZEPAM [Concomitant]
     Active Substance: OXAZEPAM
     Indication: Depression
     Dosage: 40 MILLIGRAM
     Route: 048
     Dates: end: 20211214
  4. ZOLPIDEM [Concomitant]
     Active Substance: ZOLPIDEM TARTRATE
     Indication: Sleep disorder
     Dosage: 10 MILLIGRAM
     Route: 048
     Dates: end: 20211214

REACTIONS (4)
  - Coma [Recovered/Resolved]
  - Acute kidney injury [Recovered/Resolved]
  - Miosis [Recovered/Resolved]
  - Bradypnoea [Recovered/Resolved]

NARRATIVE: CASE EVENT DATE: 20211214
